FAERS Safety Report 23446697 (Version 1)
Quarter: 2024Q1

REPORT INFORMATION
  Report Type: Spontaneous
  Country: US (occurrence: None)
  Receive Date: 20240125
  Receipt Date: 20240125
  Transmission Date: 20240410
  Serious: Yes (Other)
  Sender: FDA-Public Use
  Company Number: None

PATIENT
  Sex: Female

DRUGS (6)
  1. OTREXUP [Suspect]
     Active Substance: METHOTREXATE
     Indication: Psoriatic arthropathy
     Route: 058
     Dates: start: 20230906
  2. BUSPAR TAB 10MG [Concomitant]
  3. DEXILANT CAP 60MG DR [Concomitant]
  4. DYAZIDE CAP 37.5-25; RAYOS TAB 5MG [Concomitant]
  5. SYNTHROID TAB [Concomitant]
  6. TOPAMAX TAB [Concomitant]

REACTIONS (2)
  - Therapy interrupted [None]
  - Surgery [None]
